FAERS Safety Report 19441831 (Version 4)
Quarter: 2025Q4

REPORT INFORMATION
  Report Type: Spontaneous
  Country: EG (occurrence: EG)
  Receive Date: 20210621
  Receipt Date: 20251030
  Transmission Date: 20260118
  Serious: Yes (Congenital Anomaly, Other)
  Sender: ACCORD
  Company Number: EG-ACCORD-228817

PATIENT
  Sex: Female

DRUGS (7)
  1. MYCOPHENOLATE MOFETIL [Suspect]
     Active Substance: MYCOPHENOLATE MOFETIL
     Indication: Lupus nephritis
     Route: 064
  2. PREDNISOLONE [Suspect]
     Active Substance: PREDNISOLONE
     Indication: Lupus nephritis
     Route: 064
  3. ASPIRIN [Concomitant]
     Active Substance: ASPIRIN
     Route: 064
  4. CALCIUM [Concomitant]
     Active Substance: CALCIUM
     Indication: Mineral supplementation
     Route: 064
  5. HYDROXYCHLOROQUINE [Concomitant]
     Active Substance: HYDROXYCHLOROQUINE
     Indication: Lupus nephritis
     Route: 064
  6. IRON [Concomitant]
     Active Substance: IRON
     Indication: Mineral supplementation
     Route: 064
  7. METHYLDOPA [Concomitant]
     Active Substance: METHYLDOPA
     Route: 064

REACTIONS (6)
  - Foetal growth restriction [Unknown]
  - Musculoskeletal deformity [Unknown]
  - Micrognathia [Unknown]
  - Limb reduction defect [Unknown]
  - Talipes [Unknown]
  - Foetal exposure during pregnancy [Unknown]
